FAERS Safety Report 5016598-9 (Version None)
Quarter: 2006Q2

REPORT INFORMATION
  Report Type: 
  Country: None (occurrence: None)
  Receive Date: 20060602
  Receipt Date: 20060524
  Transmission Date: 20061013
  Serious: Yes (Other)
  Sender: FDA-Public Use
  Company Number: PHBS2006JP07906

PATIENT

DRUGS (1)
  1. TOFRANIL [Suspect]
     Route: 048

REACTIONS (4)
  - HEADACHE [None]
  - HYPOAESTHESIA [None]
  - HYPONATRAEMIA [None]
  - THIRST [None]
